FAERS Safety Report 21403613 (Version 1)
Quarter: 2022Q4

REPORT INFORMATION
  Report Type: Spontaneous
  Country: DE (occurrence: DE)
  Receive Date: 20221003
  Receipt Date: 20221003
  Transmission Date: 20230113
  Serious: Yes (Hospitalization, Other)
  Sender: FDA-Public Use
  Company Number: DE-ADRED-08309-01

PATIENT
  Age: 60 Year
  Sex: Female
  Weight: 75 kg

DRUGS (13)
  1. PIPERACILLIN SODIUM\TAZOBACTAM SODIUM [Suspect]
     Active Substance: PIPERACILLIN SODIUM\TAZOBACTAM SODIUM
     Indication: Product used for unknown indication
     Dosage: 4|0.5 G, ACCORDING TO SCHEME, SOLUTION FOR INJECTION/INFUSION?ROA-20045000
     Route: 042
  2. CINACALCET [Suspect]
     Active Substance: CINACALCET
     Indication: Product used for unknown indication
     Dosage: 90 MG, 0-0-1-0, TABLET?PDF-10219000?ROA-20053000
     Route: 048
  3. TORSEMIDE [Suspect]
     Active Substance: TORSEMIDE
     Indication: Product used for unknown indication
     Dosage: 50 MG, ACCORDING TO SCHEME, TABLET?PDF-10219000?ROA-20053000
     Route: 048
  4. BECLOMETHASONE\FORMOTEROL [Concomitant]
     Active Substance: BECLOMETHASONE\FORMOTEROL
     Indication: Product used for unknown indication
     Dosage: 100|6 ?, 2-0-2-0, AEROSOL DOSSIER?ROA-20020000
     Route: 055
  5. EZETIMIBE [Concomitant]
     Active Substance: EZETIMIBE
     Indication: Product used for unknown indication
     Dosage: 10 MG, 1-0-0-0, TABLET?PDF-10219000?ROA-20053000
     Route: 048
  6. ALFACALCIDOL [Concomitant]
     Active Substance: ALFACALCIDOL
     Indication: Product used for unknown indication
     Dosage: 0.25 ?, 0-0-1-0, ENCAPSULATED ?PFT-12100?ROA-20053000
     Route: 048
  7. CHOLECALCIFEROL [Concomitant]
     Active Substance: CHOLECALCIFEROL
     Indication: Product used for unknown indication
     Dosage: 20000 IE, ACCORDING TO SCHEME, ENCAPSULATED?PFT-12100?ROA-20053000
     Route: 048
  8. GABAPENTIN [Concomitant]
     Active Substance: GABAPENTIN
     Indication: Product used for unknown indication
     Dosage: 100 MG, 1-0-0-2, ENCAPSULATED?PFT-12100?ROA-20053000
     Route: 048
  9. DALTEPARIN [Concomitant]
     Active Substance: DALTEPARIN
     Indication: Product used for unknown indication
     Dosage: 2500 IE, 0-0-1-0, PRE-FILLED SYRINGES?ROA-20066000
     Route: 058
  10. ALBUTEROL [Concomitant]
     Active Substance: ALBUTEROL
     Indication: Product used for unknown indication
     Dosage: 0.1 MG, AS NEEDED, AEROSOL DOSSIER?ROA-20020000
     Route: 055
  11. Eisen(III) [Concomitant]
     Indication: Product used for unknown indication
     Dosage: 500 MG, 1-1-1-0, TABLET?PDF-10219000?ROA-20053000
     Route: 048
  12. PANTOPRAZOLE SODIUM [Concomitant]
     Active Substance: PANTOPRAZOLE SODIUM
     Indication: Product used for unknown indication
     Dosage: 40 MG, 1-0-0-0, PROLONGED-RELEASE TABLET?PDF-10226000?ROA-20053000
     Route: 048
  13. ROSUVASTATIN [Concomitant]
     Active Substance: ROSUVASTATIN
     Indication: Product used for unknown indication
     Dosage: 10 MG, 0-0-1-0, TABLET?PDF-10219000?ROA-20053000
     Route: 048

REACTIONS (4)
  - Ileus [None]
  - Pain [None]
  - Diarrhoea [None]
  - Nausea [None]
